FAERS Safety Report 9548182 (Version 1)
Quarter: 2013Q3

REPORT INFORMATION
  Report Type: Report from Study
  Country: US (occurrence: US)
  Receive Date: 20130924
  Receipt Date: 20130924
  Transmission Date: 20140515
  Serious: Yes (Other)
  Sender: FDA-Public Use
  Company Number: US-US-EMD SERONO, INC.-7238091

PATIENT
  Age: 45 Year
  Sex: Female
  Weight: 87 kg

DRUGS (2)
  1. REBIF [Suspect]
     Indication: MULTIPLE SCLEROSIS
     Route: 058
     Dates: start: 20121102, end: 201301
  2. REBIF [Suspect]
     Route: 058
     Dates: start: 2013

REACTIONS (3)
  - Hernia [Unknown]
  - Pneumonia [Recovered/Resolved]
  - Optic neuritis [Unknown]
